FAERS Safety Report 6299006-X (Version None)
Quarter: 2009Q3

REPORT INFORMATION
  Report Type: 
  Country: None (occurrence: None)
  Receive Date: 20090806
  Receipt Date: 20090729
  Transmission Date: 20100115
  Serious: Yes (Death, Hospitalization)
  Sender: FDA-Public Use
  Company Number: PHHY2009PL31550

PATIENT
  Sex: Male
  Weight: 94 kg

DRUGS (2)
  1. CGP 57148B T35717+ [Suspect]
     Indication: CHRONIC MYELOID LEUKAEMIA
     Dosage: 400 MG, UNK
  2. CGP 57148B T35717+ [Suspect]
     Dosage: 600 MG, UNK
     Route: 048
     Dates: start: 20080114, end: 20080818

REACTIONS (9)
  - CARDIAC ARREST [None]
  - COUGH [None]
  - DRUG INEFFECTIVE [None]
  - DYSPNOEA [None]
  - PLEURAL EFFUSION [None]
  - PNEUMONIA [None]
  - PULMONARY EMBOLISM [None]
  - PYREXIA [None]
  - RESPIRATORY FAILURE [None]
